FAERS Safety Report 10544876 (Version 3)
Quarter: 2015Q2

REPORT INFORMATION
  Report Type: Spontaneous
  Country: US (occurrence: US)
  Receive Date: 20141027
  Receipt Date: 20150618
  Transmission Date: 20150821
  Serious: Yes (Hospitalization, Other)
  Sender: FDA-Public Use
  Company Number: US-BAYER-2014-155164

PATIENT
  Age: 31 Year
  Sex: Female
  Weight: 79 kg

DRUGS (1)
  1. MIRENA [Suspect]
     Active Substance: LEVONORGESTREL
     Indication: CONTRACEPTION
     Dosage: 20 MCG/24HR, CONT
     Route: 015
     Dates: start: 20091102, end: 20110705

REACTIONS (10)
  - Uterine perforation [None]
  - Off label use of device [None]
  - Emotional distress [None]
  - Menstruation delayed [None]
  - Injury [None]
  - Abdominal pain [None]
  - Pregnancy with contraceptive device [None]
  - Drug ineffective [None]
  - Abortion spontaneous [None]
  - Device dislocation [None]

NARRATIVE: CASE EVENT DATE: 2011
